FAERS Safety Report 13997547 (Version 1)
Quarter: 2017Q3

REPORT INFORMATION
  Report Type: Spontaneous
  Country: US (occurrence: US)
  Receive Date: 20170921
  Receipt Date: 20170921
  Transmission Date: 20171128
  Serious: No
  Sender: FDA-Public Use
  Company Number: US-ALLERGAN-1726208US

PATIENT
  Sex: Female

DRUGS (1)
  1. CARAFATE [Suspect]
     Active Substance: SUCRALFATE
     Indication: GASTROOESOPHAGEAL REFLUX DISEASE
     Dosage: 10 ML, QID
     Route: 065
     Dates: start: 201706

REACTIONS (5)
  - Liquid product physical issue [Unknown]
  - Chest pain [Unknown]
  - Off label use [Unknown]
  - Oropharyngeal pain [Unknown]
  - Cough [Unknown]
